FAERS Safety Report 17209615 (Version 1)
Quarter: 2019Q4

REPORT INFORMATION
  Report Type: Spontaneous
  Country: US (occurrence: US)
  Receive Date: 20191227
  Receipt Date: 20191227
  Transmission Date: 20200122
  Serious: No
  Sender: FDA-Public Use
  Company Number: US-SA-2019SA356288

PATIENT
  Age: 54 Year
  Sex: Male

DRUGS (1)
  1. TOUJEO MAX [Suspect]
     Active Substance: INSULIN GLARGINE
     Indication: TYPE 2 DIABETES MELLITUS
     Dosage: 85 IU, BID
     Route: 065

REACTIONS (5)
  - Visual impairment [Unknown]
  - Inappropriate schedule of product administration [Unknown]
  - Dialysis [Unknown]
  - Weight increased [Unknown]
  - Blood glucose decreased [Unknown]
